FAERS Safety Report 11159961 (Version 2)
Quarter: 2015Q2

REPORT INFORMATION
  Report Type: Report from Study
  Country: BR (occurrence: BR)
  Receive Date: 20150603
  Receipt Date: 20150616
  Transmission Date: 20150821
  Serious: Yes (Other)
  Sender: FDA-Public Use
  Company Number: PHHY2015BR065904

PATIENT
  Age: 53 Year
  Sex: Female
  Weight: 80 kg

DRUGS (5)
  1. FASLODEX [Suspect]
     Active Substance: FULVESTRANT
     Indication: PRODUCT USED FOR UNKNOWN INDICATION
     Dosage: 1 DF, QMO
     Route: 042
     Dates: start: 20130128, end: 20141021
  2. AROMASIN [Suspect]
     Active Substance: EXEMESTANE
     Indication: HORMONE SUPPRESSION THERAPY
     Dosage: 1 DF, QD
     Route: 048
     Dates: start: 201412, end: 201505
  3. ZOMETA [Suspect]
     Active Substance: ZOLEDRONIC ACID
     Indication: BREAST CANCER
     Dosage: 4 MG, EVERY 3 MONTHS
     Route: 042
     Dates: start: 20130128, end: 20141021
  4. LETROZOLE SANDOZ [Suspect]
     Active Substance: LETROZOLE
     Indication: PRODUCT USED FOR UNKNOWN INDICATION
     Route: 065
  5. ZOMETA [Suspect]
     Active Substance: ZOLEDRONIC ACID
     Dosage: 4 MG, EVERY 3 MONTHS
     Route: 065
     Dates: start: 201412

REACTIONS (2)
  - Metastases to bone [Not Recovered/Not Resolved]
  - Tumour marker increased [Not Recovered/Not Resolved]

NARRATIVE: CASE EVENT DATE: 201305
